FAERS Safety Report 9784623 (Version 2)
Quarter: 2013Q4

REPORT INFORMATION
  Report Type: Spontaneous
  Country: IT (occurrence: IT)
  Receive Date: 20131226
  Receipt Date: 20131226
  Transmission Date: 20140711
  Serious: Yes (Other)
  Sender: FDA-Public Use
  Company Number: IT-ACTAVIS-2013-23345

PATIENT
  Age: 1 Year
  Sex: Female

DRUGS (1)
  1. IBUPROFEN (UNKNOWN) [Suspect]
     Indication: PYREXIA
     Dosage: 10.5 ML, DAILY
     Route: 048
     Dates: start: 20131025, end: 20131027

REACTIONS (1)
  - Angioedema [Recovering/Resolving]
